FAERS Safety Report 7533628-0 (Version None)
Quarter: 2011Q2

REPORT INFORMATION
  Report Type: 
  Country: None (occurrence: None)
  Receive Date: 20110608
  Receipt Date: 20060308
  Transmission Date: 20111010
  Serious: Yes (Death)
  Sender: FDA-Public Use
  Company Number: PHMT2006CA00824

PATIENT
  Sex: Male

DRUGS (2)
  1. DILAUDID [Concomitant]
  2. SANDOSTATIN LAR [Suspect]
     Indication: CARCINOID TUMOUR
     Dosage: 20 MG, QMO
     Dates: start: 20040617, end: 20051209

REACTIONS (1)
  - DEATH [None]
